FAERS Safety Report 5361481-2 (Version None)
Quarter: 2007Q2

REPORT INFORMATION
  Report Type: 
  Country: None (occurrence: None)
  Receive Date: 20070615
  Receipt Date: 20070615
  Transmission Date: 20071010
  Serious: Yes (Life-Threatening, Hospitalization)
  Sender: FDA-Public Use
  Company Number: None

PATIENT
  Age: 9 Month
  Sex: Female
  Weight: 10 kg

DRUGS (1)
  1. TYLENOL INFANT DROPS 80 MG/0.8 ML MCNEIL [Suspect]
     Indication: PYREXIA
     Dates: start: 20070609, end: 20070612

REACTIONS (4)
  - DIARRHOEA [None]
  - INCORRECT DOSE ADMINISTERED [None]
  - MEDICATION ERROR [None]
  - PYREXIA [None]
